FAERS Safety Report 20734685 (Version 1)
Quarter: 2022Q2

REPORT INFORMATION
  Report Type: Spontaneous
  Country: US (occurrence: US)
  Receive Date: 20220421
  Receipt Date: 20220421
  Transmission Date: 20220721
  Serious: No
  Sender: FDA-Public Use
  Company Number: US-drreddys-SPO/USA/22/0148930

PATIENT
  Age: 58 Year
  Sex: Male
  Weight: 112.5 kg

DRUGS (1)
  1. FEXOFENADINE HCL [Suspect]
     Active Substance: FEXOFENADINE HYDROCHLORIDE
     Indication: Hypersensitivity
     Dates: start: 2021

REACTIONS (3)
  - Blister [Unknown]
  - Skin exfoliation [Unknown]
  - Dry skin [Unknown]

NARRATIVE: CASE EVENT DATE: 20220101
